FAERS Safety Report 7216943-X (Version None)
Quarter: 2011Q1

REPORT INFORMATION
  Report Type: 
  Country: None (occurrence: None)
  Receive Date: 20110110
  Receipt Date: 20110105
  Transmission Date: 20110831
  Serious: Yes (Other)
  Sender: FDA-Public Use
  Company Number: US-CEPHALON-2011000068

PATIENT
  Sex: Male

DRUGS (1)
  1. TREANDA [Suspect]
     Indication: WALDENSTROM'S MACROGLOBULINAEMIA
     Route: 042

REACTIONS (1)
  - HAEMOLYTIC ANAEMIA [None]
